FAERS Safety Report 6883478-3 (Version None)
Quarter: 2010Q3

REPORT INFORMATION
  Report Type: 
  Country: None (occurrence: None)
  Receive Date: 20100729
  Receipt Date: 20100727
  Transmission Date: 20110219
  Serious: Yes (Hospitalization, Other)
  Sender: FDA-Public Use
  Company Number: CA-MERCK-1002CAN00031

PATIENT
  Age: 63 Year
  Sex: Female

DRUGS (6)
  1. FOSAMAX [Suspect]
     Indication: OSTEOPOROSIS
     Route: 048
     Dates: start: 20010101
  2. VITAMIN D (UNSPECIFIED) AND CALCIUM (UNSPECIFIED) [Concomitant]
     Indication: OSTEOPOROSIS
     Route: 065
  3. PROGESTERONE [Concomitant]
     Route: 065
     Dates: start: 20000101
  4. ESTROGENS, CONJUGATED [Concomitant]
     Indication: MENOPAUSAL SYMPTOMS
     Route: 065
     Dates: start: 20000101
  5. CITALOPRAM HYDROBROMIDE [Concomitant]
     Indication: DEPRESSION
     Route: 065
     Dates: start: 20011001
  6. CITALOPRAM HYDROBROMIDE [Concomitant]
     Indication: ANXIETY
     Route: 065
     Dates: start: 20011001

REACTIONS (6)
  - FALL [None]
  - FEMORAL NECK FRACTURE [None]
  - GAIT DISTURBANCE [None]
  - LIMB DISCOMFORT [None]
  - MUSCULOSKELETAL DISCOMFORT [None]
  - SPINAL FRACTURE [None]
